FAERS Safety Report 4666657-5 (Version None)
Quarter: 2005Q2

REPORT INFORMATION
  Report Type: 
  Country: None (occurrence: None)
  Receive Date: 20050518
  Receipt Date: 20040526
  Transmission Date: 20051028
  Serious: Yes (Other)
  Sender: FDA-Public Use
  Company Number: 2004215522US

PATIENT
  Sex: Female

DRUGS (3)
  1. PROVERA [Suspect]
     Indication: MENOPAUSAL SYMPTOMS
     Dosage: UNK, UNK, ORAL
     Route: 048
     Dates: start: 19970601, end: 19980101
  2. PREMARIN [Suspect]
     Indication: MENOPAUSAL SYMPTOMS
     Dosage: UNK, UNK, ORAL
     Route: 048
     Dates: start: 19970601, end: 19980101
  3. PREMPRO [Suspect]
     Indication: MENOPAUSAL SYMPTOMS
     Dosage: UNK, UNK, ORAL
     Route: 048
     Dates: start: 19980101, end: 19991101

REACTIONS (2)
  - PULMONARY EMBOLISM [None]
  - THROMBOSIS [None]
